FAERS Safety Report 5415725-9 (Version None)
Quarter: 2007Q3

REPORT INFORMATION
  Report Type: 
  Country: None (occurrence: None)
  Receive Date: 20070815
  Receipt Date: 20070806
  Transmission Date: 20080115
  Serious: Yes (Hospitalization)
  Sender: FDA-Public Use
  Company Number: FR-BRISTOL-MYERS SQUIBB COMPANY-13829940

PATIENT
  Age: 59 Year
  Sex: Female

DRUGS (5)
  1. ENDOXAN [Suspect]
     Indication: LYMPHOMA
     Route: 042
     Dates: start: 20070406, end: 20070406
  2. VINCRISTINE SULFATE [Suspect]
     Indication: LYMPHOMA
     Route: 042
     Dates: start: 20070406, end: 20070406
  3. DOXORUBICIN HYDROCHLORIDE [Suspect]
     Indication: LYMPHOMA
     Route: 042
     Dates: start: 20070406, end: 20070406
  4. CORTANCYL [Suspect]
     Indication: LYMPHOMA
     Route: 042
     Dates: start: 20070406, end: 20070406
  5. RITUXAN [Suspect]
     Indication: LYMPHOMA
     Route: 042
     Dates: start: 20070406, end: 20070406

REACTIONS (2)
  - FEBRILE BONE MARROW APLASIA [None]
  - HYPERTHERMIA [None]
